FAERS Safety Report 24014141 (Version 1)
Quarter: 2024Q2

REPORT INFORMATION
  Report Type: Spontaneous
  Country: ES (occurrence: ES)
  Receive Date: 20240626
  Receipt Date: 20240626
  Transmission Date: 20240715
  Serious: Yes (Life-Threatening, Hospitalization, Other)
  Sender: FDA-Public Use
  Company Number: None

PATIENT
  Age: 74 Year
  Sex: Male
  Weight: 84 kg

DRUGS (20)
  1. FUROSEMIDE [Suspect]
     Active Substance: FUROSEMIDE
     Indication: Cardiac failure
     Dosage: 120 MG, FUROSEMIDE 250 MG SOLUTION FOR INJECTION OR INFUSION 25 ML
     Dates: start: 20230305, end: 20230309
  2. INDOMETHACIN [Suspect]
     Active Substance: INDOMETHACIN
     Indication: Retinitis
     Dosage: 75MG/24H, INDOMETHACIN 25 MG 100 CAPSULES
     Dates: start: 20230306, end: 20230308
  3. EPLERENONE [Concomitant]
     Active Substance: EPLERENONE
     Indication: Cardiac failure
     Dosage: 25MG/24H, EPLERENONE 25 MG 200 TABLETS
  4. PANTOPRAZOLE [Concomitant]
     Active Substance: PANTOPRAZOLE
     Indication: Prophylaxis against gastrointestinal ulcer
     Dosage: 40MG/24H, PANTOPRAZOLE 40 MG 1 TABLET
  5. ACETAZOLAMIDE [Concomitant]
     Active Substance: ACETAZOLAMIDE
     Indication: Cardiac failure
     Dosage: 250MG/24H, ACETAZOLAMIDE 250 MG 20 TABLETS
  6. MAGNESIOBOI [Concomitant]
     Indication: Magnesium deficiency
     Dosage: 1 TABLET/24H, MAGNESIOBOI 48.62 MG TABLETS, 50 TABLETS
  7. ALBUMIN HUMAN [Concomitant]
     Active Substance: ALBUMIN HUMAN
     Indication: Hypoalbuminaemia
     Dosage: 10G/8H, HUMAN ALBUMIN 200 G/L SOLUTION FOR INJECTION OR INFUSION 10 ML
  8. ASCORBIC ACID [Concomitant]
     Active Substance: ASCORBIC ACID
     Indication: Hypokalaemia
     Dosage: 1 TABLET/24H, BOI-K EFFERVESCENT TABLETS, 20 TABLETS
  9. CLINDAMYCIN [Concomitant]
     Active Substance: CLINDAMYCIN
     Indication: Periorbital cellulitis
     Dosage: 600MG/8H, CLINDAMYCIN 600 MG SOLUTION FOR INJECTION 4 ML
     Dates: start: 20230301, end: 20230309
  10. XARELTO [Concomitant]
     Active Substance: RIVAROXABAN
     Indication: Thrombosis prophylaxis
     Dosage: 20MG/24H, XARELTO 20 MG FILM-COATED TABLETS (100 TABLETS), 100 TABLETS
  11. CHLORTHALIDONE [Concomitant]
     Active Substance: CHLORTHALIDONE
     Indication: Cardiac failure
     Dosage: 50MG/24H, CHLORTHALIDONE 50 MG 30 TABLETS
  12. ATORVASTATIN [Concomitant]
     Active Substance: ATORVASTATIN
     Indication: Hypercholesterolaemia
     Dosage: 10MG/24H, ATORVASTATIN 10 MG 200 TABLETS
  13. PIPERACILLIN SODIUM\TAZOBACTAM SODIUM [Concomitant]
     Active Substance: PIPERACILLIN SODIUM\TAZOBACTAM SODIUM
     Indication: Periorbital cellulitis
     Dosage: 4G/8H, PIPERACILLIN/TAZOBACTAM 2,000 MG/250 MG INJECTION
     Dates: start: 20230301, end: 20230308
  14. FEBUXOSTAT [Concomitant]
     Active Substance: FEBUXOSTAT
     Indication: Cardiac failure
     Dosage: 80MG/24H, ADENURIC 80 MG FILM-COATED TABLETS, 28 TABLETS
  15. HYDROXOCOBALAMIN\PYRIDOXINE HYDROCHLORIDE\THIAMINE HYDROCHLORIDE [Concomitant]
     Active Substance: HYDROXOCOBALAMIN\PYRIDOXINE HYDROCHLORIDE\THIAMINE HYDROCHLORIDE
     Indication: Vitamin B complex deficiency
     Dosage: 1 TABLET, HIDROXIL B1-B6-B12 FILM-COATED TABLETS, 30 TABLETS
  16. FOLIC ACID [Concomitant]
     Active Substance: FOLIC ACID
     Indication: Folate deficiency
     Dosage: 5MG/24H, ACFOL 5 MG TABLETS, 28 TABLETS
  17. CALCIFEDIOL [Concomitant]
     Active Substance: CALCIFEDIOL
     Indication: Hypovitaminosis
     Dosage: 1 CAPSULE/MONTH
  18. FUROSEMIDE [Concomitant]
     Active Substance: FUROSEMIDE
     Indication: Cardiac failure
     Dosage: 40MG/12H, FUROSEMIDE 40 MG 10 TABLETS
     Dates: start: 20230301, end: 20230305
  19. BISOPROLOL [Concomitant]
     Active Substance: BISOPROLOL\BISOPROLOL FUMARATE
     Indication: Cardiac failure
     Dosage: 2,5MG/24H, BISOPROLOL 2.5 MG 100 TABLETS
  20. ASPIRIN [Concomitant]
     Active Substance: ASPIRIN
     Indication: Prophylaxis
     Dosage: 100MG/24H, ADIRO 100 MG GASTRO-RESISTANT TABLETS EFG, 500 TABLETS

REACTIONS (1)
  - Acute kidney injury [Recovered/Resolved with Sequelae]

NARRATIVE: CASE EVENT DATE: 20230309
